FAERS Safety Report 8390973-7 (Version None)
Quarter: 2012Q2

REPORT INFORMATION
  Report Type: 
  Country: None (occurrence: None)
  Receive Date: 20120521
  Receipt Date: 20120507
  Transmission Date: 20120825
  Serious: Yes (Hospitalization)
  Sender: FDA-Public Use
  Company Number: 7130546

PATIENT
  Age: 87 Year
  Sex: Female

DRUGS (7)
  1. SINTROM (ACENOCOUMAROL) (TABLET) (ACENOCOUMAROL) [Suspect]
     Indication: ATRIAL FIBRILLATION
     Dosage: 0.25 DF (0.25 DF,CYCLICAL) ORAL
     Route: 048
  2. FUROSEMIDE [Suspect]
     Indication: CARDIAC FAILURE
     Dosage: 1 DF (1 DF,1 IN 1 D) ORAL
     Route: 048
  3. LEVOTHYROXINE SODIUM [Suspect]
     Indication: HYPOTHYROIDISM
     Dosage: 1 DF (1 DF,1 IN 1 D) ORAL
     Route: 048
  4. DIGOXIN [Suspect]
     Indication: ATRIAL FIBRILLATION
     Dosage: 1 DF (1 DF,1 IN 1 D) ORAL
     Route: 048
     Dates: end: 20120417
  5. HYDROCHLOROTHIAZIDE [Suspect]
     Indication: CARDIAC FAILURE
     Dosage: 1 DF (1 DF,1 IN 1 D) ORAL
     Route: 048
  6. LYRICA [Suspect]
     Indication: PRODUCT USED FOR UNKNOWN INDICATION
     Dosage: 2 DF (2 DF,1 IN 1 D) ORAL
     Route: 048
  7. NEXIUM [Suspect]
     Indication: PRODUCT USED FOR UNKNOWN INDICATION
     Dosage: 1 DF (1 DF,1 IN 1 D) ORAL
     Route: 048

REACTIONS (4)
  - MENTAL DISORDER [None]
  - DECREASED APPETITE [None]
  - BRADYCARDIA [None]
  - CEREBRAL HYPOPERFUSION [None]
